FAERS Safety Report 6610910-2 (Version None)
Quarter: 2010Q1

REPORT INFORMATION
  Report Type: 
  Country: None (occurrence: None)
  Receive Date: 20100222
  Receipt Date: 20100204
  Transmission Date: 20100710
  Serious: Yes (Hospitalization)
  Sender: FDA-Public Use
  Company Number: 2009-5033

PATIENT
  Age: 48 Year
  Sex: Female

DRUGS (6)
  1. DYSPORT [Suspect]
     Indication: SKIN COSMETIC PROCEDURE
     Dosage: 80 UNITS (80 UNITS, SINGLE CYCLE), INTRAMUSCULAR
     Route: 030
     Dates: start: 20091203, end: 20091203
  2. DYSPORT [Suspect]
     Indication: SKIN WRINKLING
     Dosage: 80 UNITS (80 UNITS, SINGLE CYCLE), INTRAMUSCULAR
     Route: 030
     Dates: start: 20091203, end: 20091203
  3. BOTOX [Suspect]
     Indication: SKIN COSMETIC PROCEDURE
     Dosage: ONCE, TRANSDERMAL
     Route: 062
     Dates: start: 20091203, end: 20091203
  4. BOTOX [Suspect]
     Indication: SKIN WRINKLING
     Dosage: ONCE, TRANSDERMAL
     Route: 062
     Dates: start: 20091203, end: 20091203
  5. XANAX [Concomitant]
  6. PREVACID [Concomitant]

REACTIONS (4)
  - CHEST PAIN [None]
  - DRUG INEFFECTIVE [None]
  - DYSPNOEA [None]
  - VOMITING PROJECTILE [None]
